FAERS Safety Report 5070992-9 (Version None)
Quarter: 2006Q3

REPORT INFORMATION
  Report Type: 
  Country: None (occurrence: None)
  Receive Date: 20060804
  Receipt Date: 20051117
  Transmission Date: 20061208
  Serious: No
  Sender: FDA-Public Use
  Company Number: US-GLAXOSMITHKLINE-A0582688A

PATIENT
  Age: 51 Year
  Sex: Male

DRUGS (1)
  1. NICORETTE (MINT) [Suspect]
     Dates: start: 20051110, end: 20051116

REACTIONS (3)
  - HEART RATE INCREASED [None]
  - MOUTH ULCERATION [None]
  - ORAL SOFT TISSUE DISORDER [None]
